FAERS Safety Report 5705700-9 (Version None)
Quarter: 2008Q2

REPORT INFORMATION
  Report Type: 
  Country: None (occurrence: None)
  Receive Date: 20080415
  Receipt Date: 20080326
  Transmission Date: 20081010
  Serious: Yes (Hospitalization, Congenital Anomaly)
  Sender: FDA-Public Use
  Company Number: A0650998A

PATIENT
  Sex: Female
  Weight: 3.3 kg

DRUGS (5)
  1. PAXIL [Suspect]
     Indication: ANXIETY
     Dates: start: 20020101, end: 20070201
  2. PAROXETINE HCL [Suspect]
     Indication: ANXIETY
     Route: 048
     Dates: start: 20020301, end: 20070101
  3. MEBARAL [Concomitant]
     Indication: EPILEPSY
     Dosage: 200MG PER DAY
     Dates: start: 19820101
  4. VITAMIN TAB [Concomitant]
     Dosage: 1TAB PER DAY
     Route: 048
     Dates: start: 20020901, end: 20031001
  5. FOLIC ACID [Concomitant]
     Dosage: 1000MG PER DAY
     Dates: start: 20020101, end: 20031001

REACTIONS (39)
  - ABDOMINAL DISTENSION [None]
  - ABNORMAL FAECES [None]
  - ACIDOSIS [None]
  - AGGRESSION [None]
  - ANGER [None]
  - ANOMALOUS PULMONARY VENOUS CONNECTION [None]
  - ANOXIC ENCEPHALOPATHY [None]
  - AORTA HYPOPLASIA [None]
  - ATRIAL SEPTAL DEFECT [None]
  - ATRIAL TACHYCARDIA [None]
  - AUTISM [None]
  - BACTERAEMIA [None]
  - CARDIAC FAILURE [None]
  - CARDIOMEGALY [None]
  - CHYLOTHORAX [None]
  - CYANOSIS [None]
  - DEVELOPMENTAL DELAY [None]
  - DIARRHOEA [None]
  - DRUG EXPOSURE DURING PREGNANCY [None]
  - ELECTROCARDIOGRAM QT PROLONGED [None]
  - EMPHYSEMA [None]
  - HYPOTENSION [None]
  - HYPOXIA [None]
  - NEPHROBLASTOMA [None]
  - NEUTROPENIA [None]
  - OBSTRUCTIVE AIRWAYS DISORDER [None]
  - PATENT DUCTUS ARTERIOSUS [None]
  - PNEUMOTHORAX [None]
  - PULMONARY HYPERTENSION [None]
  - PULMONARY OEDEMA [None]
  - PYREXIA [None]
  - RESPIRATORY DISTRESS [None]
  - RESPIRATORY FAILURE [None]
  - RIGHT VENTRICULAR FAILURE [None]
  - SPEECH DISORDER DEVELOPMENTAL [None]
  - TRICUSPID VALVE INCOMPETENCE [None]
  - VENTRICULAR HYPERTROPHY [None]
  - VOMITING [None]
  - WHEEZING [None]
